FAERS Safety Report 16618406 (Version 1)
Quarter: 2019Q3

REPORT INFORMATION
  Report Type: Spontaneous
  Country: US (occurrence: US)
  Receive Date: 20190723
  Receipt Date: 20190723
  Transmission Date: 20191004
  Serious: Yes (Hospitalization)
  Sender: FDA-Public Use
  Company Number: US-CLARIONBRANDS-2019-US-012911

PATIENT
  Sex: Female

DRUGS (1)
  1. ABSORBINE JR PLUS ULTRA STRENGTH PAIN [Suspect]
     Active Substance: MENTHOL
     Indication: ANALGESIC THERAPY
     Dosage: 1/2 PATCH TO L UPPER BACK AND UNDER L BREAST
     Route: 061

REACTIONS (8)
  - Application site ulcer [Not Recovered/Not Resolved]
  - Intentional product misuse [Recovered/Resolved]
  - Gastric pH decreased [Unknown]
  - Chest pain [Recovered/Resolved]
  - Application site pain [Not Recovered/Not Resolved]
  - Pain in extremity [Recovered/Resolved]
  - Application site pain [Recovered/Resolved]
  - Drug ineffective [Recovered/Resolved]
